FAERS Safety Report 12665821 (Version 1)
Quarter: 2016Q3

REPORT INFORMATION
  Report Type: Spontaneous
  Country: US (occurrence: US)
  Receive Date: 20160818
  Receipt Date: 20160818
  Transmission Date: 20161109
  Serious: Yes (Death)
  Sender: FDA-Public Use
  Company Number: US-BION-20160380

PATIENT
  Age: 29 Year
  Sex: Female

DRUGS (7)
  1. METOCLOPROMIDE [Concomitant]
     Active Substance: METOCLOPRAMIDE
  2. LOPRAMIDE HCL CAPSULES [Suspect]
     Active Substance: LOPERAMIDE HYDROCHLORIDE
     Dosage: 384 2 MG PILLS
     Route: 048
  3. CYCLOBENZEPRINE [Concomitant]
  4. CITALOPRAM [Concomitant]
     Active Substance: CITALOPRAM HYDROBROMIDE
  5. FLUOXETINE/NORFLUOXETINE [Concomitant]
  6. HYDROCODONE [Concomitant]
     Active Substance: HYDROCODONE
  7. 7-AMINOCLONAZEPAM [Concomitant]
     Active Substance: CLONAZEPAM

REACTIONS (1)
  - Drug abuse [Fatal]
